FAERS Safety Report 5312520-6 (Version None)
Quarter: 2007Q2

REPORT INFORMATION
  Report Type: 
  Country: None (occurrence: None)
  Receive Date: 20070430
  Receipt Date: 20061120
  Transmission Date: 20071010
  Serious: No
  Sender: FDA-Public Use
  Company Number: 2006UW25610

PATIENT
  Age: 64 Year
  Sex: Female
  Weight: 59 kg

DRUGS (7)
  1. NEXIUM [Suspect]
     Indication: COUGH
     Route: 048
     Dates: start: 20061001
  2. TOPROL-XL [Concomitant]
     Route: 048
  3. VALIUM [Concomitant]
  4. CIPRO [Concomitant]
     Indication: URINARY TRACT INFECTION
  5. BACTRIM [Concomitant]
     Indication: URINARY TRACT INFECTION
  6. LEVAQUIN [Concomitant]
     Indication: URINARY TRACT INFECTION
  7. ZOLOFT [Concomitant]
     Indication: DEPRESSION

REACTIONS (4)
  - COUGH [None]
  - DYSPNOEA [None]
  - FALL [None]
  - HEADACHE [None]
